FAERS Safety Report 25791025 (Version 1)
Quarter: 2025Q3

REPORT INFORMATION
  Report Type: Spontaneous
  Country: CA (occurrence: CA)
  Receive Date: 20250911
  Receipt Date: 20250911
  Transmission Date: 20251021
  Serious: Yes (Other)
  Sender: CELLTRION
  Company Number: CA-PFIZER INC-202500173921

PATIENT

DRUGS (2)
  1. INFLECTRA [Suspect]
     Active Substance: INFLIXIMAB-DYYB
     Indication: Crohn^s disease
     Route: 042
     Dates: start: 20240711
  2. INFLECTRA [Suspect]
     Active Substance: INFLIXIMAB-DYYB
     Route: 042
     Dates: start: 20250826

REACTIONS (9)
  - Anastomotic erosion [Not Recovered/Not Resolved]
  - Peritonitis [Unknown]
  - Cholelithiasis [Unknown]
  - Benign biliary neoplasm [Unknown]
  - Pancreatic cyst [Unknown]
  - Adnexa uteri mass [Unknown]
  - Vitamin B12 decreased [Unknown]
  - Lymphocyte count increased [Unknown]
  - Red blood cell count decreased [Unknown]

NARRATIVE: CASE EVENT DATE: 20240814
